FAERS Safety Report 9905466 (Version 1)
Quarter: 2013Q2

REPORT INFORMATION
  Report Type: Spontaneous
  Country: US (occurrence: None)
  Receive Date: 20130305
  Receipt Date: 20130305
  Transmission Date: 20140414
  Serious: Yes (Hospitalization)
  Sender: FDA-Public Use
  Company Number: 163-21880-12041638

PATIENT
  Age: 74 Year
  Sex: Female
  Weight: 41.73 kg

DRUGS (7)
  1. REVLIMID (LENALIDOMIDE) (CAPSULES) [Suspect]
     Indication: PLASMA CELL MYELOMA
     Route: 048
     Dates: start: 201203, end: 20120413
  2. DEXAMETHASONE (DEXAMETHASONE) [Concomitant]
  3. MS CONTIN (MORPHINE SULFATE) [Concomitant]
  4. MORPHINE SULFATE (MORHINE SULFATE) [Concomitant]
  5. OXYCODONE (OXYCODONE) [Concomitant]
  6. PREDNISONE (PREDNISONE) [Concomitant]
  7. COMPAZINE (PROCHLORPHERAZINE EDISYLATE) [Concomitant]

REACTIONS (1)
  - Renal impairment [None]
